FAERS Safety Report 7655368-X (Version None)
Quarter: 2011Q3

REPORT INFORMATION
  Report Type: 
  Country: None (occurrence: None)
  Receive Date: 20110729
  Receipt Date: 20110721
  Transmission Date: 20111222
  Serious: Yes (Life-Threatening)
  Sender: FDA-Public Use
  Company Number: TCI2011A04031

PATIENT
  Age: 78 Year
  Sex: Male

DRUGS (5)
  1. NORVASC [Concomitant]
  2. SIMVASTATIN [Concomitant]
  3. CANDESARTAN CILEXETIL [Concomitant]
  4. ACTOS [Suspect]
     Indication: DIABETES MELLITUS
     Dosage: 15 MG (15 MG, 1 IN 1 D), PER ORAL
     Route: 048
     Dates: start: 20041026, end: 20110624
  5. SEIBULE (MIGLITOL) [Concomitant]

REACTIONS (4)
  - TRANSITIONAL CELL CARCINOMA [None]
  - CATARACT OPERATION [None]
  - DYSLIPIDAEMIA [None]
  - BLADDER CANCER [None]
